FAERS Safety Report 10080199 (Version 1)
Quarter: 2014Q2

REPORT INFORMATION
  Report Type: Spontaneous
  Country: US (occurrence: US)
  Receive Date: 20140415
  Receipt Date: 20140415
  Transmission Date: 20141212
  Serious: No
  Sender: FDA-Public Use
  Company Number: US-ALEXION-A201401309

PATIENT
  Sex: 0

DRUGS (2)
  1. SOLIRIS 300MG [Suspect]
     Indication: NEUROMYELITIS OPTICA
     Dosage: 900 MG, Q2W
     Route: 042
  2. SOLIRIS 300MG [Suspect]
     Indication: OFF LABEL USE

REACTIONS (2)
  - Off label use [Unknown]
  - No adverse event [Unknown]
